FAERS Safety Report 5921788-4 (Version None)
Quarter: 2008Q4

REPORT INFORMATION
  Report Type: 
  Country: None (occurrence: None)
  Receive Date: 20081017
  Receipt Date: 20081006
  Transmission Date: 20090506
  Serious: Yes (Other)
  Sender: FDA-Public Use
  Company Number: US-JNJFOC-20081001892

PATIENT
  Age: 62 Year
  Sex: Female
  Weight: 90.1 kg

DRUGS (21)
  1. DOXIL [Suspect]
     Dosage: TOTAL DOSE ADMINISTERED THIS COURSE 75MG
     Route: 042
  2. DOXIL [Suspect]
     Indication: B-CELL LYMPHOMA
     Dosage: 40MG/M2
     Route: 042
  3. RITUXIMAB [Suspect]
     Dosage: TOTAL DOSE ADMINISTERED THIS COURSE 708MG
     Route: 042
  4. RITUXIMAB [Suspect]
     Indication: B-CELL LYMPHOMA
     Dosage: 375MG/M2
     Route: 042
  5. CYCLOPHOSPHAMIDE [Suspect]
     Dosage: TOTAL DOSE ADMINISTERED THIS COURSE 1417MG
     Route: 042
  6. CYCLOPHOSPHAMIDE [Suspect]
     Indication: B-CELL LYMPHOMA
     Dosage: 750 MG/M2
     Route: 042
  7. VINCRISTINE [Suspect]
     Dosage: TOTAL DOSE ADMINISTERED THIS COURSE 2MG
     Route: 042
  8. VINCRISTINE [Suspect]
     Indication: B-CELL LYMPHOMA
     Route: 042
  9. PREDNISONE TAB [Suspect]
     Dosage: DAILY FOR 5 DAYS, ON DAY 1 TO 5, TOTAL DOSE ADMINISTERED THIS COURSE 200MG
     Route: 048
  10. PREDNISONE TAB [Suspect]
     Indication: B-CELL LYMPHOMA
     Dosage: DAILY FOR 5 DAYS, ON DAY 1 TO 5.
     Route: 048
  11. NEULASTA [Suspect]
     Dosage: 24 HOURS AFTER CHEMOTHERAPY, TOTAL DOSE ADMINISTERED THIS COURSE 6MG
     Route: 058
  12. NEULASTA [Suspect]
     Indication: B-CELL LYMPHOMA
     Dosage: 24 HOURS AFTER CHEMOTHERAPY
     Route: 058
  13. ABH [Concomitant]
     Route: 065
  14. BENADRYL [Concomitant]
     Route: 065
  15. COREG [Concomitant]
     Route: 065
  16. DARVON [Concomitant]
     Route: 065
  17. ENOXAPARIN SODIUM [Concomitant]
     Route: 065
  18. NEXIUM [Concomitant]
     Route: 065
  19. SENOKOT [Concomitant]
     Route: 065
  20. ZOFRAN [Concomitant]
     Route: 065
  21. ZOLOFT [Concomitant]
     Route: 065

REACTIONS (4)
  - PALMAR-PLANTAR ERYTHRODYSAESTHESIA SYNDROME [None]
  - PALPITATIONS [None]
  - SUPRAVENTRICULAR EXTRASYSTOLES [None]
  - VENTRICULAR ARRHYTHMIA [None]
